FAERS Safety Report 9733832 (Version 1)
Quarter: 2013Q4

REPORT INFORMATION
  Report Type: Report from Study
  Country: HK (occurrence: HK)
  Receive Date: 20131205
  Receipt Date: 20131205
  Transmission Date: 20140711
  Serious: Yes (Hospitalization)
  Sender: FDA-Public Use
  Company Number: HK-EISAI INC-E2007-01446-SOL-HK

PATIENT
  Age: 39 Year
  Sex: Female

DRUGS (9)
  1. E2007 (PERAMPANEL) [Suspect]
     Indication: PARTIAL SEIZURES
     Route: 048
     Dates: start: 20120412, end: 20130902
  2. E2007 (PERAMPANEL) [Suspect]
     Route: 048
     Dates: start: 20130903, end: 20131128
  3. E2007 (PERAMPANEL) [Suspect]
     Route: 048
     Dates: start: 20131129
  4. AMLODIPINE [Concomitant]
     Indication: HYPERTENSION
     Route: 048
     Dates: start: 20121227
  5. FOLATE [Concomitant]
     Indication: NUTRITIONAL SUPPLEMENTATION
     Route: 048
     Dates: start: 19970708
  6. OXCARBAZEPINE [Concomitant]
     Indication: EPILEPSY
     Route: 048
     Dates: start: 20110531, end: 20131128
  7. OXCARBAZEPINE [Concomitant]
     Route: 048
     Dates: start: 20131129
  8. LOSARTAN [Concomitant]
     Indication: HYPERTENSION
     Route: 048
     Dates: start: 20130903
  9. VALPROATE [Concomitant]
     Indication: EPILEPSY
     Route: 048
     Dates: start: 20110412

REACTIONS (1)
  - Renal failure [Not Recovered/Not Resolved]
